FAERS Safety Report 25315934 (Version 2)
Quarter: 2025Q2

REPORT INFORMATION
  Report Type: Spontaneous
  Country: MX (occurrence: MX)
  Receive Date: 20250515
  Receipt Date: 20250616
  Transmission Date: 20250716
  Serious: Yes (Other)
  Sender: NOVO NORDISK
  Company Number: MX-NOVOPROD-1426109

PATIENT
  Age: 63 Year
  Sex: Female
  Weight: 67 kg

DRUGS (3)
  1. RYBELSUS [Suspect]
     Active Substance: SEMAGLUTIDE
     Indication: Overweight
     Route: 048
     Dates: start: 20240310
  2. RYBELSUS [Suspect]
     Active Substance: SEMAGLUTIDE
     Route: 048
  3. RYBELSUS [Suspect]
     Active Substance: SEMAGLUTIDE
     Indication: Glucose tolerance impaired
     Dosage: 14 MG, QD
     Dates: start: 20241003

REACTIONS (3)
  - Kidney infection [Recovered/Resolved]
  - Nausea [Recovered/Resolved]
  - Off label use [Not Recovered/Not Resolved]

NARRATIVE: CASE EVENT DATE: 20240310
